FAERS Safety Report 8459193 (Version 2)
Quarter: 2013Q1

REPORT INFORMATION
  Report Type: Report from Study
  Country: JP (occurrence: JP)
  Receive Date: 20120314
  Receipt Date: 20130130
  Transmission Date: 20140127
  Serious: Yes (Hospitalization)
  Sender: FDA-Public Use
  Company Number: JP-BRISTOL-MYERS SQUIBB COMPANY-14748628

PATIENT
  Age: 69 Year
  Sex: Female
  Weight: 61.2 kg

DRUGS (2)
  1. SPRYCEL (CML) TABS 50 MG [Suspect]
     Indication: CHRONIC MYELOID LEUKAEMIA
     Dosage: 20MAY09-01JUL09:100MG/DAY,23JUL09-26AUG09:50MG/DAY,09SEP09-NI:50MG,5NOV09-29DEC09,21JAN10-10FEB10
     Route: 048
     Dates: start: 20090520, end: 20110503
  2. TASIGNA [Concomitant]
     Indication: CHRONIC MYELOID LEUKAEMIA
     Dosage: CAP
     Route: 048
     Dates: start: 20110505

REACTIONS (5)
  - Pulmonary haemorrhage [Recovering/Resolving]
  - Respiratory failure [Unknown]
  - Platelet count decreased [Recovering/Resolving]
  - Haematuria [Recovered/Resolved]
  - Cystitis [Unknown]
